FAERS Safety Report 15955751 (Version 1)
Quarter: 2019Q1

REPORT INFORMATION
  Report Type: Spontaneous
  Country: US (occurrence: US)
  Receive Date: 20190212
  Receipt Date: 20190212
  Transmission Date: 20190417
  Serious: Yes (Other)
  Sender: FDA-Public Use
  Company Number: None

PATIENT
  Age: 73 Year
  Sex: Male
  Weight: 79.65 kg

DRUGS (2)
  1. TRIAMCINOLONE ACETONIDE OINTMENT [Suspect]
     Active Substance: TRIAMCINOLONE ACETONIDE
     Indication: FUNGAL INFECTION
     Route: 061
     Dates: start: 20190112, end: 20190126
  2. NYSTATIN OINTMENT [Suspect]
     Active Substance: NYSTATIN
     Indication: FUNGAL INFECTION
     Route: 061
     Dates: start: 20190112, end: 20190126

REACTIONS (3)
  - Drug ineffective [None]
  - Rash pruritic [None]
  - Rash erythematous [None]

NARRATIVE: CASE EVENT DATE: 20190211
